FAERS Safety Report 4463465-5 (Version None)
Quarter: 2004Q3

REPORT INFORMATION
  Report Type: 
  Country: None (occurrence: None)
  Receive Date: 20040928
  Receipt Date: 20040914
  Transmission Date: 20050211
  Serious: Yes (Hospitalization)
  Sender: FDA-Public Use
  Company Number: 204803

PATIENT
  Age: 51 Year
  Sex: Female
  Weight: 56.6996 kg

DRUGS (8)
  1. AVONEX [Suspect]
     Indication: MULTIPLE SCLEROSIS
     Dosage: 30 MCG QW IM
     Route: 030
     Dates: start: 20010401, end: 20030801
  2. AVONEX [Suspect]
     Indication: MULTIPLE SCLEROSIS
     Dosage: 30 MCG QW IM
     Route: 030
     Dates: start: 20030801
  3. TEGRETOL [Concomitant]
  4. MULTI-VITAMINS [Concomitant]
  5. FOLIC ACID [Concomitant]
  6. CALCIUM WITH VITAMIN D [Concomitant]
  7. AMANTADINE HCL [Concomitant]
  8. CARAFATE [Concomitant]

REACTIONS (6)
  - BLOOD TEST ABNORMAL [None]
  - CHILLS [None]
  - CHOLELITHIASIS [None]
  - FEELING ABNORMAL [None]
  - INSOMNIA [None]
  - MULTIPLE SCLEROSIS [None]
